FAERS Safety Report 5851081-X (Version None)
Quarter: 2008Q3

REPORT INFORMATION
  Report Type: 
  Country: None (occurrence: None)
  Receive Date: 20080820
  Receipt Date: 20080808
  Transmission Date: 20090109
  Serious: Yes (Other)
  Sender: FDA-Public Use
  Company Number: US-BAYER-200824247GPV

PATIENT
  Age: 74 Year

DRUGS (2)
  1. ASPIRIN [Suspect]
     Indication: THROMBOSIS PROPHYLAXIS
     Route: 065
  2. CLOPIDOGREL [Suspect]
     Indication: THROMBOSIS PROPHYLAXIS
     Route: 065

REACTIONS (3)
  - ECCHYMOSIS [None]
  - HAEMATOMA [None]
  - POST PROCEDURAL HAEMORRHAGE [None]
